FAERS Safety Report 24981035 (Version 1)
Quarter: 2025Q1

REPORT INFORMATION
  Report Type: Spontaneous
  Country: US (occurrence: None)
  Receive Date: 20250215
  Receipt Date: 20250215
  Transmission Date: 20250409
  Serious: Yes (Disabling)
  Sender: FDA-CTU
  Company Number: None

PATIENT
  Age: 79 Year
  Sex: Female
  Weight: 77.85 kg

DRUGS (5)
  1. RECLAST [Suspect]
     Active Substance: ZOLEDRONIC ACID
     Indication: Osteoporosis
     Route: 042
     Dates: start: 20241113
  2. TYLENOL [Concomitant]
     Active Substance: ACETAMINOPHEN
  3. RAMELTEON [Concomitant]
     Active Substance: RAMELTEON
  4. HYDROXYCHLOROQUINE [Concomitant]
     Active Substance: HYDROXYCHLOROQUINE
  5. VITAMIN D3 [Concomitant]
     Active Substance: CHOLECALCIFEROL

REACTIONS (6)
  - Influenza like illness [None]
  - Pain in extremity [None]
  - Pain in extremity [None]
  - Loss of personal independence in daily activities [None]
  - Rheumatoid arthritis [None]
  - Chondrocalcinosis [None]

NARRATIVE: CASE EVENT DATE: 20241113
